FAERS Safety Report 23464134 (Version 1)
Quarter: 2024Q1

REPORT INFORMATION
  Report Type: Spontaneous
  Country: CA (occurrence: CA)
  Receive Date: 20240201
  Receipt Date: 20240201
  Transmission Date: 20240409
  Serious: Yes (Other)
  Sender: FDA-Public Use
  Company Number: CA-AMGEN-CANSL2024009251

PATIENT
  Sex: Female

DRUGS (5)
  1. REPATHA [Suspect]
     Active Substance: EVOLOCUMAB
     Indication: Hypercholesterolaemia
     Dosage: 140 MILLIGRAM, Q2WK
     Route: 065
  2. REPATHA [Suspect]
     Active Substance: EVOLOCUMAB
  3. PROLIA [Suspect]
     Active Substance: DENOSUMAB
     Indication: Product used for unknown indication
     Dosage: UNK
     Route: 065
  4. DUPIXENT [Concomitant]
     Active Substance: DUPILUMAB
  5. PENTASA [Concomitant]
     Active Substance: MESALAMINE
     Indication: Abdominal discomfort

REACTIONS (3)
  - Macular degeneration [Not Recovered/Not Resolved]
  - Cataract [Unknown]
  - Therapeutic product effect incomplete [Unknown]
